FAERS Safety Report 5237716-3 (Version None)
Quarter: 2007Q1

REPORT INFORMATION
  Report Type: 
  Country: None (occurrence: None)
  Receive Date: 20070214
  Receipt Date: 20070206
  Transmission Date: 20070707
  Serious: Yes (Hospitalization)
  Sender: FDA-Public Use
  Company Number: 2007UW02252

PATIENT
  Age: 51 Year
  Sex: Female
  Weight: 103.4 kg

DRUGS (28)
  1. SEROQUEL [Suspect]
     Indication: THINKING ABNORMAL
     Dosage: HS
     Route: 048
  2. SEROQUEL [Suspect]
     Indication: HALLUCINATION
     Dosage: HS
     Route: 048
  3. SEROQUEL [Suspect]
     Indication: HYPOMANIA
     Dosage: HS
     Route: 048
  4. SEROQUEL [Suspect]
     Dosage: HS
     Route: 048
     Dates: start: 20040101
  5. SEROQUEL [Suspect]
     Dosage: HS
     Route: 048
     Dates: start: 20040101
  6. SEROQUEL [Suspect]
     Dosage: HS
     Route: 048
     Dates: start: 20040101
  7. PAXIL [Concomitant]
  8. DEPAKOTE [Concomitant]
  9. AMBIEN [Concomitant]
     Indication: INSOMNIA
  10. PAMELOR [Concomitant]
  11. PROZAC [Concomitant]
  12. THORAZINE [Concomitant]
  13. ELAVIL [Concomitant]
  14. ZOLOFT [Concomitant]
  15. TRILAFON [Concomitant]
  16. DEPAKOTE [Concomitant]
  17. LITHIUM CARBONATE [Concomitant]
  18. BENADRYL [Concomitant]
  19. NEURONTIN [Concomitant]
  20. WELLBUTRIN [Concomitant]
  21. GEODON [Concomitant]
  22. BUSPAR [Concomitant]
  23. EFFEXOR [Concomitant]
  24. CELEXA [Concomitant]
  25. LORAZEPAM [Concomitant]
  26. LEXAPRO [Concomitant]
  27. REMERON [Concomitant]
  28. LAMOTRIGINE [Concomitant]

REACTIONS (5)
  - ANAEMIA [None]
  - CONFUSIONAL STATE [None]
  - CONVULSION [None]
  - NEUROLEPTIC MALIGNANT SYNDROME [None]
  - SEROTONIN SYNDROME [None]
